FAERS Safety Report 6894555-5 (Version None)
Quarter: 2010Q3

REPORT INFORMATION
  Report Type: 
  Country: None (occurrence: None)
  Receive Date: 20100802
  Receipt Date: 20100720
  Transmission Date: 20110219
  Serious: Yes (Other)
  Sender: FDA-Public Use
  Company Number: PHFR2010GB01446

PATIENT
  Sex: Female

DRUGS (3)
  1. ESTRADERM [Suspect]
     Dosage: 100 MICROGRAM
     Route: 062
  2. ESTRADERM [Suspect]
     Dosage: 50 MICROGRAM
     Route: 062
  3. ESTRADERM [Suspect]
     Route: 062

REACTIONS (9)
  - AGITATION [None]
  - AGORAPHOBIA [None]
  - DEPRESSED MOOD [None]
  - INSOMNIA [None]
  - IRRITABILITY [None]
  - MENTAL IMPAIRMENT [None]
  - MENTAL STATUS CHANGES [None]
  - SOCIAL AVOIDANT BEHAVIOUR [None]
  - VAGINAL HAEMORRHAGE [None]
